FAERS Safety Report 18543649 (Version 1)
Quarter: 2020Q4

REPORT INFORMATION
  Report Type: Spontaneous
  Country: US (occurrence: US)
  Receive Date: 20201124
  Receipt Date: 20201124
  Transmission Date: 20210114
  Serious: No
  Sender: FDA-Public Use
  Company Number: US-CELGENEUS-USA-20201105004

PATIENT
  Sex: Female

DRUGS (2)
  1. REBLOZYL [Suspect]
     Active Substance: LUSPATERCEPT-AAMT
     Indication: THALASSAEMIA BETA
     Route: 058
     Dates: start: 20200923
  2. JADENU [Concomitant]
     Active Substance: DEFERASIROX
     Indication: PRODUCT USED FOR UNKNOWN INDICATION
     Route: 065

REACTIONS (5)
  - Fatigue [Unknown]
  - Anxiety [Unknown]
  - Feeling abnormal [Unknown]
  - Presyncope [Unknown]
  - Back pain [Unknown]

NARRATIVE: CASE EVENT DATE: 2020
